FAERS Safety Report 8770863 (Version 1)
Quarter: 2012Q4

REPORT INFORMATION
  Report Type: 
  Country: GB (occurrence: GB)
  Receive Date: 20120906
  Receipt Date: 20120906
  Transmission Date: 20130627
  Serious: Yes (Other)
  Sender: FDA-Public Use
  Company Number: GB-AMGEN-GBRSP2012055652

PATIENT
  Age: 57 Year
  Sex: Female
  Weight: 57 kg

DRUGS (2)
  1. NPLATE [Suspect]
     Indication: THROMBOCYTOPENIA
     Dosage: 3 mg/kg, UNK
     Route: 058
     Dates: start: 201106
  2. TRANEXAMIC ACID [Concomitant]
     Indication: VAGINAL HAEMORRHAGE
     Dosage: 1000 mg, UNK
     Dates: start: 2006

REACTIONS (2)
  - Endometrial hyperplasia [Not Recovered/Not Resolved]
  - Postmenopausal haemorrhage [Not Recovered/Not Resolved]
